FAERS Safety Report 6913304-5 (Version None)
Quarter: 2010Q3

REPORT INFORMATION
  Report Type: 
  Country: None (occurrence: None)
  Receive Date: 20100809
  Receipt Date: 20100729
  Transmission Date: 20110219
  Serious: No
  Sender: FDA-Public Use
  Company Number: US-BIOGENIDEC-2010BI026373

PATIENT
  Sex: Female

DRUGS (2)
  1. AVONEX [Suspect]
     Indication: MULTIPLE SCLEROSIS
     Route: 030
     Dates: start: 19990901, end: 20020709
  2. AVONEX [Suspect]
     Route: 030
     Dates: start: 20051017, end: 20100531

REACTIONS (4)
  - BLOOD CHOLESTEROL INCREASED [None]
  - HYPERTENSION [None]
  - INFLUENZA [None]
  - MOBILITY DECREASED [None]
